FAERS Safety Report 9536742 (Version 1)
Quarter: 2013Q3

REPORT INFORMATION
  Report Type: Spontaneous
  Country: BR (occurrence: BR)
  Receive Date: 20130919
  Receipt Date: 20130919
  Transmission Date: 20140515
  Serious: Yes (Other)
  Sender: FDA-Public Use
  Company Number: BR-SANOFI-AVENTIS-2013SA091333

PATIENT
  Sex: Female
  Weight: 90 kg

DRUGS (3)
  1. LANTUS [Suspect]
     Indication: TYPE 2 DIABETES MELLITUS
     Route: 058
     Dates: start: 201303
  2. GALVUS [Concomitant]
     Indication: TYPE 2 DIABETES MELLITUS
     Dosage: STRENGTH: 50 MG
     Route: 048
  3. CLIKSTAR [Concomitant]
     Indication: DEVICE THERAPY
     Route: 058
     Dates: start: 201303

REACTIONS (2)
  - Retinal detachment [Recovering/Resolving]
  - Blindness [Recovering/Resolving]
